FAERS Safety Report 17924115 (Version 1)
Quarter: 2020Q2

REPORT INFORMATION
  Report Type: Spontaneous
  Country: US (occurrence: US)
  Receive Date: 20200622
  Receipt Date: 20200622
  Transmission Date: 20200714
  Serious: Yes (Hospitalization)
  Sender: FDA-Public Use
  Company Number: None

PATIENT
  Sex: Female

DRUGS (2)
  1. AMBRISENTAN [Suspect]
     Active Substance: AMBRISENTAN
     Indication: PULMONARY ARTERIAL HYPERTENSION
     Route: 048
     Dates: start: 20200514
  2. TADALAFIL. [Suspect]
     Active Substance: TADALAFIL

REACTIONS (5)
  - Asthenia [None]
  - Therapy interrupted [None]
  - Treatment noncompliance [None]
  - Dyspnoea [None]
  - Therapeutic product effect incomplete [None]
